FAERS Safety Report 7481333-1 (Version None)
Quarter: 2011Q2

REPORT INFORMATION
  Report Type: 
  Country: None (occurrence: None)
  Receive Date: 20110516
  Receipt Date: 20110506
  Transmission Date: 20111010
  Serious: Yes (Hospitalization, Other)
  Sender: FDA-Public Use
  Company Number: GB-NOVOPROD-327861

PATIENT
  Sex: Male
  Weight: 123 kg

DRUGS (9)
  1. RAMIPRIL [Concomitant]
  2. VICTOZA [Suspect]
     Indication: PRODUCT USED FOR UNKNOWN INDICATION
     Dosage: 1.2 MG, QD
     Route: 058
     Dates: start: 20110223
  3. ISOSORBIDE MONONITRATE [Concomitant]
  4. ATORVASTATIN [Concomitant]
  5. METFORMIN HCL [Concomitant]
  6. BISOPROLOL FUMARATE [Concomitant]
  7. PROPRANOLOL [Concomitant]
  8. CLOPIDOGREL [Concomitant]
  9. ASPIRIN [Concomitant]

REACTIONS (1)
  - MYOCARDIAL INFARCTION [None]
